FAERS Safety Report 7884560-4 (Version None)
Quarter: 2011Q4

REPORT INFORMATION
  Report Type: 
  Country: None (occurrence: None)
  Receive Date: 20111102
  Receipt Date: 20111101
  Transmission Date: 20120403
  Serious: Yes (Hospitalization)
  Sender: FDA-Public Use
  Company Number: CA-BRISTOL-MYERS SQUIBB COMPANY-16153231

PATIENT
  Age: 23 Year
  Sex: Female

DRUGS (4)
  1. ABILIFY [Suspect]
     Indication: BIPOLAR DISORDER
     Route: 048
     Dates: start: 20110922, end: 20110101
  2. SEROQUEL [Concomitant]
  3. LITHIUM CITRATE [Concomitant]
  4. ATIVAN [Concomitant]

REACTIONS (1)
  - PARALYSIS [None]
